FAERS Safety Report 11506588 (Version 2)
Quarter: 2015Q3

REPORT INFORMATION
  Report Type: Spontaneous
  Country: US (occurrence: US)
  Receive Date: 20150915
  Receipt Date: 20150918
  Transmission Date: 20151125
  Serious: No
  Sender: FDA-Public Use
  Company Number: US-RB-074188-15

PATIENT

DRUGS (2)
  1. MUCINEX [Suspect]
     Active Substance: GUAIFENESIN
     Indication: SINUS OPERATION
  2. MUCINEX [Suspect]
     Active Substance: GUAIFENESIN
     Indication: COUGH
     Dosage: 600MG. ,QD
     Route: 065
     Dates: end: 20150307

REACTIONS (3)
  - Pruritus generalised [Recovering/Resolving]
  - Incorrect drug administration duration [Recovered/Resolved]
  - Expired product administered [Recovered/Resolved]
